FAERS Safety Report 7065791-2 (Version None)
Quarter: 2010Q4

REPORT INFORMATION
  Report Type: 
  Country: None (occurrence: None)
  Receive Date: 20101027
  Receipt Date: 20101018
  Transmission Date: 20110411
  Serious: Yes (Other)
  Sender: FDA-Public Use
  Company Number: FR-ELI_LILLY_AND_COMPANY-FR201006005412

PATIENT
  Age: 55 Year
  Sex: Female
  Weight: 70 kg

DRUGS (8)
  1. BYETTA [Suspect]
     Indication: TYPE 2 DIABETES MELLITUS
     Dosage: 5 UG, UNK
     Route: 058
     Dates: start: 20091103, end: 20091202
  2. BYETTA [Suspect]
     Dosage: 10 UG, UNK
     Route: 058
     Dates: start: 20091203
  3. LEVEMIR [Concomitant]
     Indication: TYPE 2 DIABETES MELLITUS
     Dosage: 10 IU, EACH EVENING
     Dates: start: 20070301
  4. NOVONORM [Concomitant]
     Indication: TYPE 2 DIABETES MELLITUS
     Dosage: 3 MG, 2/D
     Route: 048
  5. NOVONORM [Concomitant]
     Dosage: 4 MG, DAILY (1/D)
  6. AVANDAMET [Concomitant]
     Indication: TYPE 2 DIABETES MELLITUS
     Dosage: 2 D/F, DAILY (1/D)
     Route: 048
  7. TAHOR [Concomitant]
     Indication: MIXED HYPERLIPIDAEMIA
     Dosage: 10 MG, UNK
  8. FENOFIBRATE [Concomitant]
     Indication: MIXED HYPERLIPIDAEMIA
     Dosage: 160 MG, UNK

REACTIONS (4)
  - EXTREMITY NECROSIS [None]
  - INGROWING NAIL [None]
  - OFF LABEL USE [None]
  - ONYCHOMADESIS [None]
